FAERS Safety Report 23971462 (Version 1)
Quarter: 2024Q2

REPORT INFORMATION
  Report Type: Spontaneous
  Country: DE (occurrence: DE)
  Receive Date: 20240613
  Receipt Date: 20240613
  Transmission Date: 20240716
  Serious: Yes (Hospitalization)
  Sender: FDA-Public Use
  Company Number: DE-002147023-NVSC2024DE092039

PATIENT
  Age: 6 Year
  Sex: Male

DRUGS (17)
  1. CLOBAZAM [Suspect]
     Active Substance: CLOBAZAM
     Indication: Generalised tonic-clonic seizure
     Dosage: 0.06MG/KG/DAY
     Route: 065
  2. CLOBAZAM [Suspect]
     Active Substance: CLOBAZAM
     Dosage: 0.11 MG/KG/DAY
     Route: 065
  3. FOSPHENYTOIN [Suspect]
     Active Substance: FOSPHENYTOIN
     Dosage: 0.11 MG/KG/DAY
     Route: 065
  4. FOSPHENYTOIN [Suspect]
     Active Substance: FOSPHENYTOIN
     Indication: Generalised tonic-clonic seizure
     Dosage: EXACT DOSE NOT AVAILABLE
     Route: 042
  5. LEVETIRACETAM [Suspect]
     Active Substance: LEVETIRACETAM
     Indication: Generalised tonic-clonic seizure
     Dosage: 40 MG/KG, QD
     Route: 065
  6. LEVETIRACETAM [Suspect]
     Active Substance: LEVETIRACETAM
     Dosage: 40 MG/KG/DAY
     Route: 065
  7. LEVETIRACETAM [Suspect]
     Active Substance: LEVETIRACETAM
     Dosage: 60 MG/KG, QD
     Route: 042
  8. LORAZEPAM [Suspect]
     Active Substance: LORAZEPAM
     Indication: Generalised tonic-clonic seizure
     Dosage: 0.1 MG/KG
     Route: 042
  9. MIDAZOLAM [Suspect]
     Active Substance: MIDAZOLAM
     Indication: Generalised tonic-clonic seizure
     Dosage: 5 MG
     Route: 048
  10. OXCARBAZEPINE [Suspect]
     Active Substance: OXCARBAZEPINE
     Indication: Generalised tonic-clonic seizure
     Dosage: 0.25 MG/KG, QD
     Route: 065
  11. PHENOBARBITAL [Suspect]
     Active Substance: PHENOBARBITAL
     Indication: Generalised tonic-clonic seizure
     Dosage: 10 MG/KG, QD
     Route: 042
  12. PHENOBARBITAL [Suspect]
     Active Substance: PHENOBARBITAL
     Dosage: 5 MG/KG, QD
     Route: 048
  13. CLONAZEPAM [Concomitant]
     Active Substance: CLONAZEPAM
     Indication: Generalised tonic-clonic seizure
     Dosage: 0.06 MILLIGRAM/KILOGRAM
     Route: 041
  14. CLONAZEPAM [Concomitant]
     Active Substance: CLONAZEPAM
     Dosage: 0.06 MILLIGRAM/KILOGRAM
     Route: 065
  15. LACOSAMIDE [Concomitant]
     Active Substance: LACOSAMIDE
     Indication: Generalised tonic-clonic seizure
     Dosage: 2 MILLIGRAM/KILOGRAM
     Route: 042
  16. VALPROIC ACID [Concomitant]
     Active Substance: VALPROIC ACID
     Indication: Generalised tonic-clonic seizure
     Dosage: 10 MG/KG, QD
     Route: 042
  17. VALPROIC ACID [Concomitant]
     Active Substance: VALPROIC ACID
     Dosage: 10 MILLIGRAM/KILOGRAM/DAY
     Route: 048

REACTIONS (5)
  - Bradypnoea [Unknown]
  - Hypoxia [Unknown]
  - Rash [Unknown]
  - Drug ineffective [Unknown]
  - Muscle spasms [Unknown]
